FAERS Safety Report 11282584 (Version 5)
Quarter: 2016Q2

REPORT INFORMATION
  Report Type: Spontaneous
  Country: US (occurrence: US)
  Receive Date: 20150720
  Receipt Date: 20160503
  Transmission Date: 20160815
  Serious: Yes (Other)
  Sender: FDA-Public Use
  Company Number: US-BAYER-2015-373435

PATIENT
  Age: 21 Year
  Sex: Female

DRUGS (1)
  1. MIRENA [Suspect]
     Active Substance: LEVONORGESTREL
     Indication: CONTRACEPTION
     Dosage: 20 MCG/24HR, CONT
     Route: 015
     Dates: start: 20150619, end: 20150620

REACTIONS (5)
  - Abdominal pain [Recovered/Resolved]
  - Abdominal pain lower [None]
  - Device expulsion [Recovered/Resolved]
  - Genital haemorrhage [None]
  - Pelvic pain [None]

NARRATIVE: CASE EVENT DATE: 201506
